FAERS Safety Report 7495435-7 (Version None)
Quarter: 2011Q2

REPORT INFORMATION
  Report Type: 
  Country: None (occurrence: None)
  Receive Date: 20110523
  Receipt Date: 20110502
  Transmission Date: 20111010
  Serious: No
  Sender: FDA-Public Use
  Company Number: US-TYCO HEALTHCARE/MALLINCKRODT-T201100885

PATIENT
  Age: 59 Year
  Sex: Male

DRUGS (5)
  1. NUVIGIL [Concomitant]
     Dosage: UNK
  2. FENTANYL-100 [Suspect]
     Indication: BACK PAIN
     Dosage: 100 UG/HR Q72 HOURS
     Route: 062
     Dates: start: 20110201
  3. NEURONTIN [Concomitant]
     Dosage: UNK
  4. EFFEXOR [Concomitant]
     Dosage: UNK
  5. OXYCODONE HCL [Concomitant]
     Dosage: UNK

REACTIONS (3)
  - WITHDRAWAL SYNDROME [None]
  - NAUSEA [None]
  - DRUG INEFFECTIVE [None]
